FAERS Safety Report 9431298 (Version 1)
Quarter: 2013Q3

REPORT INFORMATION
  Report Type: Spontaneous
  Country: US (occurrence: US)
  Receive Date: 20130730
  Receipt Date: 20130730
  Transmission Date: 20140515
  Serious: No
  Sender: FDA-Public Use
  Company Number: US-JHP PHARMACEUTICALS, LLC-JHP201200526

PATIENT
  Sex: Female

DRUGS (2)
  1. TIGAN INJECTION [Suspect]
     Indication: NAUSEA
     Dosage: 200 MG, QID
     Route: 042
     Dates: start: 20121110, end: 20121112
  2. TIGAN INJECTION [Suspect]
     Indication: VOMITING

REACTIONS (2)
  - Incorrect route of drug administration [Recovered/Resolved]
  - No adverse event [Recovered/Resolved]
